FAERS Safety Report 8408539-9 (Version None)
Quarter: 2012Q2

REPORT INFORMATION
  Report Type: 
  Country: None (occurrence: None)
  Receive Date: 20120604
  Receipt Date: 20120525
  Transmission Date: 20120825
  Serious: Yes (Hospitalization)
  Sender: FDA-Public Use
  Company Number: US-FRI-1000030811

PATIENT
  Age: 26 Year
  Sex: Female

DRUGS (1)
  1. VIIBRYD [Suspect]
     Dates: start: 20111001, end: 20111101

REACTIONS (2)
  - INSOMNIA [None]
  - PSYCHOTIC DISORDER [None]
